FAERS Safety Report 9523881 (Version 1)
Quarter: 2013Q3

REPORT INFORMATION
  Report Type: Spontaneous
  Country: US (occurrence: None)
  Receive Date: 20130912
  Receipt Date: 20130912
  Transmission Date: 20140515
  Serious: Yes (Hospitalization)
  Sender: FDA-Public Use
  Company Number: VAL_01887_2013

PATIENT
  Age: 69 Year
  Sex: Male
  Weight: 112 kg

DRUGS (5)
  1. METOPROLOL [Suspect]
     Indication: HYPERTENSION
     Dates: start: 1993, end: 20090108
  2. ALISKIREN [Suspect]
     Indication: CARDIOVASCULAR DISORDER
     Dosage: (CODE NOT BROKEN ORAL) (CODE BROKEN DUE TO END OF STUDY ORAL)
     Route: 048
     Dates: start: 20081113
  3. NORVASC (NOT SPECIFIED) [Suspect]
     Indication: HYPERTENSION
     Dates: start: 20080901, end: 20090108
  4. LASIX [Concomitant]
  5. ENALAPRIL [Concomitant]

REACTIONS (2)
  - Presyncope [None]
  - Bradycardia [None]
